FAERS Safety Report 7836773-5 (Version None)
Quarter: 2011Q4

REPORT INFORMATION
  Report Type: 
  Country: None (occurrence: None)
  Receive Date: 20111024
  Receipt Date: 20110724
  Transmission Date: 20120403
  Serious: No
  Sender: FDA-Public Use
  Company Number: US-ABBOTT-11P-163-0841219-00

PATIENT
  Sex: Female

DRUGS (2)
  1. LUVOX [Concomitant]
     Indication: PRODUCT USED FOR UNKNOWN INDICATION
  2. LUPRON DEPOT [Suspect]
     Indication: ENDOMETRIOSIS
     Dates: start: 20110628

REACTIONS (7)
  - ABNORMAL BEHAVIOUR [None]
  - DEPRESSION [None]
  - HEADACHE [None]
  - ALOPECIA [None]
  - ANXIETY [None]
  - DECREASED APPETITE [None]
  - DYSGEUSIA [None]
